FAERS Safety Report 19942089 (Version 3)
Quarter: 2024Q3

REPORT INFORMATION
  Report Type: Spontaneous
  Country: US (occurrence: US)
  Receive Date: 20211012
  Receipt Date: 20240828
  Transmission Date: 20241016
  Serious: No
  Sender: SUNOVION
  Company Number: US-MYOVANT SCIENCES GMBH-2021MYSCI0700022

PATIENT

DRUGS (8)
  1. ORGOVYX [Suspect]
     Active Substance: RELUGOLIX
     Indication: Prostate cancer
     Dosage: 120 MILLIGRAM, QD
     Route: 048
     Dates: start: 20210319
  2. ORGOVYX [Suspect]
     Active Substance: RELUGOLIX
     Dosage: UNK
     Route: 065
  3. ORGOVYX [Suspect]
     Active Substance: RELUGOLIX
     Dosage: UNK
     Route: 065
  4. ORGOVYX [Suspect]
     Active Substance: RELUGOLIX
     Dosage: UNK
     Route: 048
  5. ORGOVYX [Suspect]
     Active Substance: RELUGOLIX
     Dosage: UNK
     Route: 048
  6. XTANDI [Suspect]
     Active Substance: ENZALUTAMIDE
     Indication: Prostate cancer
     Dosage: 160 MG, QD
     Route: 065
     Dates: start: 20210511
  7. XTANDI [Suspect]
     Active Substance: ENZALUTAMIDE
     Dosage: 80 MILLIGRAM, QD
     Route: 065
  8. XTANDI [Suspect]
     Active Substance: ENZALUTAMIDE
     Dosage: 40 MILLIGRAM, QD
     Route: 065

REACTIONS (8)
  - Temperature intolerance [Unknown]
  - Abdominal distension [Recovering/Resolving]
  - Bone density abnormal [Unknown]
  - Occult blood positive [Unknown]
  - Malaise [Unknown]
  - Hot flush [Recovering/Resolving]
  - Fatigue [Not Recovered/Not Resolved]
  - Weight increased [Not Recovered/Not Resolved]

NARRATIVE: CASE EVENT DATE: 20210701
